FAERS Safety Report 15957168 (Version 1)
Quarter: 2019Q1

REPORT INFORMATION
  Report Type: Spontaneous
  Country: FR (occurrence: FR)
  Receive Date: 20190213
  Receipt Date: 20190213
  Transmission Date: 20190417
  Serious: Yes (Hospitalization)
  Sender: FDA-Public Use
  Company Number: FR-TEVA-2019-FR-1009423

PATIENT
  Age: 16 Year
  Sex: Female

DRUGS (4)
  1. LOPERAMIDE [Suspect]
     Active Substance: LOPERAMIDE
     Indication: SUICIDE ATTEMPT
     Dosage: 16 MG DE LOPERAMIDE (9 CP)
     Route: 048
     Dates: start: 20181104, end: 20181104
  2. MEDROL [Suspect]
     Active Substance: METHYLPREDNISOLONE
     Indication: SUICIDE ATTEMPT
     Dosage: SCORED
     Route: 048
     Dates: start: 20181104, end: 20181104
  3. PARACETAMOL [Suspect]
     Active Substance: ACETAMINOPHEN
     Indication: SUICIDE ATTEMPT
     Route: 048
     Dates: start: 20181104, end: 20181104
  4. SPASFON (PHLOROGLUCINOL) [Suspect]
     Active Substance: PHLOROGLUCINOL
     Indication: SUICIDE ATTEMPT
     Route: 048
     Dates: start: 20181104, end: 20181104

REACTIONS (2)
  - Vomiting [Recovered/Resolved]
  - Toxicity to various agents [Recovered/Resolved]

NARRATIVE: CASE EVENT DATE: 20181104
